FAERS Safety Report 14642061 (Version 1)
Quarter: 2018Q1

REPORT INFORMATION
  Report Type: Spontaneous
  Country: US (occurrence: US)
  Receive Date: 20180315
  Receipt Date: 20180315
  Transmission Date: 20180509
  Serious: Yes (Other)
  Sender: FDA-Public Use
  Company Number: None

PATIENT
  Age: 86 Year
  Sex: Female
  Weight: 75.69 kg

DRUGS (6)
  1. CENTRUM SILVER 50+ WOMEN [Concomitant]
  2. CAPECITABINE. [Suspect]
     Active Substance: CAPECITABINE
     Indication: BREAST CANCER
     Route: 048
     Dates: start: 20180116, end: 20180314
  3. FEMARA [Concomitant]
     Active Substance: LETROZOLE
  4. ZOMETA [Concomitant]
     Active Substance: ZOLEDRONIC ACID
  5. ONDANSETRON [Concomitant]
     Active Substance: ONDANSETRON
  6. CAPECITABINE. [Suspect]
     Active Substance: CAPECITABINE
     Indication: BREAST CANCER
     Route: 048
     Dates: start: 20180116, end: 20180314

REACTIONS (1)
  - Disease progression [None]
